FAERS Safety Report 4920078-6 (Version None)
Quarter: 2006Q1

REPORT INFORMATION
  Report Type: 
  Country: None (occurrence: None)
  Receive Date: 20060216
  Receipt Date: 20060208
  Transmission Date: 20060701
  Serious: Yes (Other)
  Sender: FDA-Public Use
  Company Number: 2005S1000206

PATIENT
  Sex: Female

DRUGS (1)
  1. ACITRETIN [Suspect]
     Dosage: VAG
     Route: 067
     Dates: start: 20050401

REACTIONS (3)
  - CAESAREAN SECTION [None]
  - PREGNANCY OF PARTNER [None]
  - TRANSMISSION OF DRUG VIA SEMEN [None]
